FAERS Safety Report 16335942 (Version 1)
Quarter: 2019Q2

REPORT INFORMATION
  Report Type: Spontaneous
  Country: US (occurrence: US)
  Receive Date: 20190521
  Receipt Date: 20190521
  Transmission Date: 20190711
  Serious: No
  Sender: FDA-Public Use
  Company Number: US-DRREDDYS-USA/USA/19/0108759

PATIENT
  Sex: Female
  Weight: 85.5 kg

DRUGS (1)
  1. ALLOPURINOL 100 MG [Suspect]
     Active Substance: ALLOPURINOL
     Indication: NEPHROLITHIASIS
     Route: 048
     Dates: end: 20190218

REACTIONS (1)
  - Lichenoid keratosis [Recovered/Resolved]
